FAERS Safety Report 10227419 (Version 1)
Quarter: 2014Q2

REPORT INFORMATION
  Report Type: Spontaneous
  Country: US (occurrence: US)
  Receive Date: 20140610
  Receipt Date: 20140610
  Transmission Date: 20141212
  Serious: No
  Sender: FDA-Public Use
  Company Number: US-PFIZER INC-2014157688

PATIENT
  Age: 72 Year
  Sex: Female

DRUGS (7)
  1. DAYPRO [Suspect]
     Dosage: UNK
  2. DOXYCYCLINE HYCLATE [Suspect]
     Dosage: UNK
  3. ALENDRONATE [Suspect]
     Dosage: UNK
  4. LEVOFLOXACIN [Suspect]
     Dosage: UNK
  5. TERBINAFINE [Suspect]
     Dosage: UNK
  6. ORUVAIL [Suspect]
     Dosage: UNK
  7. SALSALATE [Suspect]
     Dosage: UNK

REACTIONS (1)
  - Drug hypersensitivity [Unknown]
